FAERS Safety Report 7596363-9 (Version None)
Quarter: 2011Q3

REPORT INFORMATION
  Report Type: 
  Country: None (occurrence: None)
  Receive Date: 20110707
  Receipt Date: 20110701
  Transmission Date: 20111222
  Serious: Yes (Hospitalization)
  Sender: FDA-Public Use
  Company Number: FR-GILEAD-2011-0041315

PATIENT
  Sex: Male

DRUGS (7)
  1. TRUVADA [Suspect]
     Indication: HIV INFECTION
     Route: 048
     Dates: start: 20080905
  2. ASPIRIN [Concomitant]
     Dates: start: 20061001
  3. IMOVANE [Concomitant]
     Dates: start: 20060331
  4. REYATAZ [Suspect]
     Indication: HIV INFECTION
     Route: 048
     Dates: start: 20051104
  5. COMBIVIR [Concomitant]
     Dates: start: 20051104, end: 20110101
  6. PLAVIX [Concomitant]
     Dates: start: 20051104, end: 20110513
  7. PRAVASTATIN SODIUM [Concomitant]
     Dates: start: 20061219, end: 20110513

REACTIONS (1)
  - RENAL COLIC [None]
